FAERS Safety Report 7620312-8 (Version None)
Quarter: 2011Q3

REPORT INFORMATION
  Report Type: 
  Country: None (occurrence: None)
  Receive Date: 20110719
  Receipt Date: 20110714
  Transmission Date: 20111222
  Serious: Yes (Hospitalization, Other)
  Sender: FDA-Public Use
  Company Number: JP-JNJFOC-20100807823

PATIENT
  Sex: Male

DRUGS (13)
  1. TOPIRAMATE [Suspect]
     Indication: PARTIAL SEIZURES
     Route: 048
     Dates: start: 20100708, end: 20100728
  2. TEGRETOL [Suspect]
     Indication: EPILEPSY
     Route: 065
  3. TOPIRAMATE [Suspect]
     Route: 048
     Dates: start: 20100824, end: 20100826
  4. VALPROATE SODIUM [Concomitant]
     Route: 048
     Dates: end: 20100331
  5. TOPIRAMATE [Suspect]
     Route: 048
     Dates: start: 20100401, end: 20100623
  6. TOPIRAMATE [Suspect]
     Route: 048
     Dates: start: 20100729
  7. TOPIRAMATE [Suspect]
     Route: 048
     Dates: start: 20100624, end: 20100707
  8. VALPROATE SODIUM [Concomitant]
     Indication: EPILEPSY
     Route: 048
     Dates: start: 20100708, end: 20100728
  9. VALPROATE SODIUM [Concomitant]
     Route: 048
     Dates: start: 20100401, end: 20100421
  10. VALPROATE SODIUM [Concomitant]
     Route: 048
     Dates: start: 20100422, end: 20100707
  11. TOPIRAMATE [Suspect]
     Route: 048
     Dates: start: 20100729, end: 20100823
  12. TOPIRAMATE [Suspect]
     Route: 048
     Dates: start: 20100311, end: 20100331
  13. TOPIRAMATE [Suspect]
     Route: 048
     Dates: start: 20100225, end: 20100310

REACTIONS (4)
  - GAMMA-GLUTAMYLTRANSFERASE INCREASED [None]
  - WHITE BLOOD CELL COUNT DECREASED [None]
  - SYSTEMIC LUPUS ERYTHEMATOSUS [None]
  - PLATELET COUNT DECREASED [None]
